FAERS Safety Report 10254398 (Version 3)
Quarter: 2015Q3

REPORT INFORMATION
  Report Type: Report from Study
  Country: US (occurrence: US)
  Receive Date: 20140624
  Receipt Date: 20150716
  Transmission Date: 20151125
  Serious: Yes (Hospitalization)
  Sender: FDA-Public Use
  Company Number: US-BIOGENIDEC-2014BI058448

PATIENT
  Age: 65 Year
  Sex: Female

DRUGS (1)
  1. AVONEX [Suspect]
     Active Substance: INTERFERON BETA-1A
     Indication: MULTIPLE SCLEROSIS
     Route: 030
     Dates: start: 20090909

REACTIONS (7)
  - Depressed mood [Recovered/Resolved]
  - Influenza like illness [Not Recovered/Not Resolved]
  - Influenza [Unknown]
  - Poor quality sleep [Recovered/Resolved]
  - Cystitis [Recovered/Resolved]
  - Abasia [Recovered/Resolved with Sequelae]
  - Mobility decreased [Recovered/Resolved]

NARRATIVE: CASE EVENT DATE: 20090909
